FAERS Safety Report 4510830-3 (Version None)
Quarter: 2004Q4

REPORT INFORMATION
  Report Type: 
  Country: None (occurrence: None)
  Receive Date: 20041025
  Receipt Date: 20031209
  Transmission Date: 20050328
  Serious: Yes (Other)
  Sender: FDA-Public Use
  Company Number: NSADSS2003009763

PATIENT
  Age: 36 Year
  Sex: Male
  Weight: 139.7079 kg

DRUGS (5)
  1. REMICADE [Suspect]
     Indication: PSORIATIC ARTHROPATHY
     Dosage: SEE IMAGE
     Route: 041
     Dates: start: 20030225, end: 20030225
  2. REMICADE [Suspect]
     Indication: PSORIATIC ARTHROPATHY
     Dosage: SEE IMAGE
     Route: 041
     Dates: start: 20030410
  3. REMICADE [Suspect]
     Indication: PSORIATIC ARTHROPATHY
     Dosage: SEE IMAGE
     Route: 041
     Dates: start: 20030520
  4. VOLTAREN [Concomitant]
  5. LIPITOR [Concomitant]

REACTIONS (1)
  - ANAPHYLACTIC REACTION [None]
